FAERS Safety Report 5080868-9 (Version None)
Quarter: 2006Q3

REPORT INFORMATION
  Report Type: 
  Country: None (occurrence: None)
  Receive Date: 20060810
  Receipt Date: 20060803
  Transmission Date: 20061208
  Serious: Yes (Hospitalization)
  Sender: FDA-Public Use
  Company Number: SPV1-2006-00328

PATIENT
  Age: 73 Year
  Sex: Female

DRUGS (1)
  1. ANAGRELIDE HCL [Suspect]
     Indication: MYELOPROLIFERATIVE DISORDER
     Dates: start: 20041115

REACTIONS (3)
  - ERYSIPELAS [None]
  - OEDEMA PERIPHERAL [None]
  - VARICOSE ULCERATION [None]
